FAERS Safety Report 9848346 (Version 1)
Quarter: 2014Q1

REPORT INFORMATION
  Report Type: Spontaneous
  Country: FI (occurrence: FI)
  Receive Date: 20140128
  Receipt Date: 20140128
  Transmission Date: 20141002
  Serious: Yes (Other)
  Sender: FDA-Public Use
  Company Number: FI-ROCHE-1339695

PATIENT
  Age: 64 Year
  Sex: Female

DRUGS (5)
  1. NEULASTA [Suspect]
     Indication: PRODUCT USED FOR UNKNOWN INDICATION
     Route: 065
  2. TAXOTERE [Concomitant]
     Route: 065
  3. CYCLOPHOSPHAMIDE [Concomitant]
     Route: 065
  4. EPIRUBICIN [Concomitant]
     Route: 065
  5. LETROZOLE [Concomitant]
     Route: 065

REACTIONS (4)
  - Neutropenia [Unknown]
  - Coronary artery disease [Unknown]
  - Febrile infection [Unknown]
  - Herpes zoster [Unknown]
